FAERS Safety Report 9367064 (Version 2)
Quarter: 2013Q2

REPORT INFORMATION
  Report Type: Spontaneous
  Country: US (occurrence: US)
  Receive Date: 20130625
  Receipt Date: 20130628
  Transmission Date: 20140414
  Serious: Yes (Hospitalization, Other)
  Sender: FDA-Public Use
  Company Number: US-BAXTER-2013BAX022321

PATIENT
  Age: 27 Year
  Sex: Male

DRUGS (2)
  1. DIANEAL PD2 [Suspect]
     Indication: PERITONEAL DIALYSIS
     Route: 033
     Dates: start: 2013, end: 20130603
  2. COUMADIN [Suspect]
     Indication: PRODUCT USED FOR UNKNOWN INDICATION
     Route: 065

REACTIONS (6)
  - Convulsion [Recovering/Resolving]
  - Blood creatine increased [Recovering/Resolving]
  - Haemorrhage [Recovered/Resolved]
  - Hernia [Recovered/Resolved]
  - Procedural complication [Recovering/Resolving]
  - Abdominal distension [Recovering/Resolving]
